FAERS Safety Report 12717620 (Version 2)
Quarter: 2016Q3

REPORT INFORMATION
  Report Type: Other
  Country: US (occurrence: US)
  Receive Date: 20160906
  Receipt Date: 20160915
  Transmission Date: 20161109
  Serious: Yes (Other)
  Sender: FDA-Public Use
  Company Number: US-SHIRE-US201611068

PATIENT
  Sex: Female

DRUGS (3)
  1. CINRYZE [Suspect]
     Active Substance: HUMAN C1-ESTERASE INHIBITOR
     Indication: PROPHYLAXIS
  2. DANAZOL. [Concomitant]
     Active Substance: DANAZOL
     Indication: PRODUCT USED FOR UNKNOWN INDICATION
     Dosage: UNK, UNKNOWN
     Route: 065
     Dates: start: 20160815, end: 20160901
  3. CINRYZE [Suspect]
     Active Substance: HUMAN C1-ESTERASE INHIBITOR
     Indication: HEREDITARY ANGIOEDEMA
     Dosage: 1000 UNITS, OTHER (EVERY 3 TO 4 DAYS)
     Route: 042
     Dates: start: 201603

REACTIONS (7)
  - Hereditary angioedema [Not Recovered/Not Resolved]
  - Dizziness [Unknown]
  - Pharyngeal oedema [Not Recovered/Not Resolved]
  - Syncope [Unknown]
  - Visual impairment [Unknown]
  - Intracranial pressure increased [Unknown]
  - Blindness [Unknown]

NARRATIVE: CASE EVENT DATE: 2016
